FAERS Safety Report 6062700-X (Version None)
Quarter: 2009Q1

REPORT INFORMATION
  Report Type: 
  Country: None (occurrence: None)
  Receive Date: 20090203
  Receipt Date: 20090126
  Transmission Date: 20090719
  Serious: Yes (Other)
  Sender: FDA-Public Use
  Company Number: PHHO2007BE09357

PATIENT
  Sex: Male
  Weight: 62 kg

DRUGS (6)
  1. ZOLEDRONIC ACID [Suspect]
     Indication: METASTASES TO BONE
     Dosage: 4MG EVERY 4 WEEKS
     Route: 042
     Dates: start: 20031204, end: 20070405
  2. CALCIUM [Concomitant]
  3. VITAMIN D [Concomitant]
  4. THALIDOMIDE [Concomitant]
     Indication: MULTIPLE MYELOMA
     Dosage: 150MG PER DAY
     Route: 048
     Dates: start: 20070315
  5. CORTICOSTEROIDS [Concomitant]
  6. PREDNISOLONE [Concomitant]

REACTIONS (8)
  - BONE LESION [None]
  - FISTULA [None]
  - GINGIVAL HYPERTROPHY [None]
  - MALIGNANT NEOPLASM PROGRESSION [None]
  - MULTIPLE MYELOMA [None]
  - OSTEOLYSIS [None]
  - OSTEONECROSIS [None]
  - PAIN IN JAW [None]
